FAERS Safety Report 20349782 (Version 1)
Quarter: 2022Q1

REPORT INFORMATION
  Report Type: Spontaneous
  Country: US (occurrence: None)
  Receive Date: 20220117
  Receipt Date: 20220117
  Transmission Date: 20220424
  Serious: Yes (Hospitalization)
  Sender: FDA-Public Use
  Company Number: None

PATIENT
  Age: 58 Year
  Sex: Male
  Weight: 73.35 kg

DRUGS (6)
  1. PRIVIGEN [Suspect]
     Active Substance: HUMAN IMMUNOGLOBULIN G
     Indication: Complications of transplanted kidney
     Dosage: OTHER FREQUENCY : 65GM X 2 DAYS;?
     Route: 042
     Dates: start: 20220116, end: 20220116
  2. PRIVIGEN [Suspect]
     Active Substance: HUMAN IMMUNOGLOBULIN G
     Indication: Complications of transplanted kidney
     Dosage: OTHER FREQUENCY : 65GM X 2 DAYS;?
     Route: 042
     Dates: start: 20220116, end: 20220116
  3. PREDNISONE [Concomitant]
     Active Substance: PREDNISONE
     Dates: start: 20220116, end: 20220116
  4. CLONIDINE [Concomitant]
     Active Substance: CLONIDINE
     Dates: start: 20220116, end: 20220116
  5. DIPHENHYDRAMINE [Concomitant]
     Active Substance: DIPHENHYDRAMINE
     Dates: start: 20220116, end: 20220116
  6. Acetaminophen 352mg [Concomitant]
     Dates: start: 20220116, end: 20220116

REACTIONS (1)
  - Hypersensitivity [None]

NARRATIVE: CASE EVENT DATE: 20220116
